FAERS Safety Report 21595531 (Version 1)
Quarter: 2022Q4

REPORT INFORMATION
  Report Type: Spontaneous
  Country: DE (occurrence: DE)
  Receive Date: 20221115
  Receipt Date: 20221115
  Transmission Date: 20230112
  Serious: Yes (Disabling)
  Sender: FDA-Public Use
  Company Number: DE-PFIZER INC-PV202200101191

PATIENT
  Age: 43 Year
  Sex: Female

DRUGS (1)
  1. MEDROXYPROGESTERONE ACETATE [Suspect]
     Active Substance: MEDROXYPROGESTERONE ACETATE
     Indication: Contraception
     Dosage: UNK

REACTIONS (2)
  - Pruritus genital [Not Recovered/Not Resolved]
  - Anal pruritus [Not Recovered/Not Resolved]

NARRATIVE: CASE EVENT DATE: 20221001
